FAERS Safety Report 23170228 (Version 18)
Quarter: 2025Q1

REPORT INFORMATION
  Report Type: Report from Study
  Country: CA (occurrence: CA)
  Receive Date: 20231110
  Receipt Date: 20250109
  Transmission Date: 20250408
  Serious: Yes (Hospitalization, Other)
  Sender: JOHNSON AND JOHNSON
  Company Number: CA-JNJFOC-20230858258

PATIENT
  Age: 51 Year
  Sex: Female
  Weight: 95 kg

DRUGS (6)
  1. REMICADE [Suspect]
     Active Substance: INFLIXIMAB
     Indication: Colitis ulcerative
     Route: 041
     Dates: start: 20230313, end: 20250103
  2. REMICADE [Suspect]
     Active Substance: INFLIXIMAB
     Route: 041
     Dates: start: 2023
  3. REMICADE [Suspect]
     Active Substance: INFLIXIMAB
     Route: 041
     Dates: start: 2023
  4. REMICADE [Suspect]
     Active Substance: INFLIXIMAB
     Route: 041
     Dates: start: 20231229
  5. REMICADE [Suspect]
     Active Substance: INFLIXIMAB
     Route: 041
  6. PREDNISONE [Concomitant]
     Active Substance: PREDNISONE
     Indication: Product used for unknown indication
     Dosage: CURRENTLY TAKING PREDNISONE 6 TABLETS PER DAY, AND WOULD TAPER DOWN TO 4 TABLETS PER DAY. STILL TAKI
     Route: 065

REACTIONS (16)
  - Hospitalisation [Unknown]
  - Sepsis [Unknown]
  - Blood glucose increased [Unknown]
  - Colitis ulcerative [Not Recovered/Not Resolved]
  - Liver transplant rejection [Unknown]
  - Off label use [Unknown]
  - Drug ineffective [Unknown]
  - Contusion [Unknown]
  - Cough [Unknown]
  - Pyrexia [Unknown]
  - Product dose omission issue [Unknown]
  - Inappropriate schedule of product administration [Unknown]
  - Cognitive disorder [Not Recovered/Not Resolved]
  - Lumbar puncture [Unknown]
  - Urinary tract infection [Unknown]
  - Escherichia infection [Unknown]
